FAERS Safety Report 6221988-2 (Version None)
Quarter: 2009Q2

REPORT INFORMATION
  Report Type: 
  Country: None (occurrence: None)
  Receive Date: 20090611
  Receipt Date: 20090604
  Transmission Date: 20091009
  Serious: Yes (Other)
  Sender: FDA-Public Use
  Company Number: CN-JNJFOC-20090602032

PATIENT
  Age: 60 Year
  Sex: Male

DRUGS (1)
  1. DURAGESIC-100 [Suspect]
     Indication: CANCER PAIN
     Dosage: 5 MG US.EXT
     Route: 062

REACTIONS (2)
  - LETHARGY [None]
  - ORAL DISCHARGE [None]
